FAERS Safety Report 22627355 (Version 1)
Quarter: 2023Q2

REPORT INFORMATION
  Report Type: Spontaneous
  Country: US (occurrence: US)
  Receive Date: 20230622
  Receipt Date: 20230622
  Transmission Date: 20230721
  Serious: No
  Sender: FDA-Public Use
  Company Number: US-ASCENDIS PHARMA-2023US002105

PATIENT

DRUGS (1)
  1. SKYTROFA [Suspect]
     Active Substance: LONAPEGSOMATROPIN-TCGD
     Indication: Short stature
     Dosage: 9.1 MILLIGRAM, WEEKLY
     Route: 058
     Dates: start: 20221003

REACTIONS (2)
  - Incorrect dose administered [Recovered/Resolved]
  - Device use error [Recovered/Resolved]

NARRATIVE: CASE EVENT DATE: 20230327
